FAERS Safety Report 5528989-8 (Version None)
Quarter: 2007Q4

REPORT INFORMATION
  Report Type: 
  Country: None (occurrence: None)
  Receive Date: 20071129
  Receipt Date: 20071119
  Transmission Date: 20080405
  Serious: Yes (Other)
  Sender: FDA-Public Use
  Company Number: US-AMGEN-QUU253380

PATIENT
  Sex: Female

DRUGS (2)
  1. ENBREL [Suspect]
     Indication: RHEUMATOID ARTHRITIS
     Route: 058
     Dates: start: 20070820
  2. HYDROXYCHLOROQUINE SULFATE [Concomitant]
     Dates: start: 20050101

REACTIONS (7)
  - ABNORMAL SENSATION IN EYE [None]
  - DRUG INEFFECTIVE [None]
  - DRY EYE [None]
  - FOREIGN BODY SENSATION IN EYES [None]
  - SYSTEMIC LUPUS ERYTHEMATOSUS [None]
  - VISION BLURRED [None]
  - VOMITING [None]
